FAERS Safety Report 4301398-5 (Version None)
Quarter: 2004Q1

REPORT INFORMATION
  Report Type: 
  Country: None (occurrence: None)
  Receive Date: 20040223
  Receipt Date: 20031112
  Transmission Date: 20041129
  Serious: Yes (Hospitalization, Other)
  Sender: FDA-Public Use
  Company Number: US-GLAXOSMITHKLINE-A0439424A

PATIENT
  Sex: Female

DRUGS (1)
  1. NAVELBINE [Suspect]
     Route: 042
     Dates: start: 20031105, end: 20031105

REACTIONS (3)
  - BLISTER [None]
  - ERYTHEMA [None]
  - SWELLING [None]
